FAERS Safety Report 14532883 (Version 7)
Quarter: 2019Q2

REPORT INFORMATION
  Report Type: Spontaneous
  Country: US (occurrence: US)
  Receive Date: 20180214
  Receipt Date: 20190416
  Transmission Date: 20190711
  Serious: No
  Sender: FDA-Public Use
  Company Number: US-BRISTOL-MYERS SQUIBB COMPANY-BMS-2018-012184

PATIENT
  Sex: Female
  Weight: 62.13 kg

DRUGS (2)
  1. ORENCIA [Suspect]
     Active Substance: ABATACEPT
     Indication: PRODUCT USED FOR UNKNOWN INDICATION
     Dosage: 125 MILLIGRAM, QWK
     Route: 058
     Dates: start: 201607
  2. ORENCIA [Suspect]
     Active Substance: ABATACEPT
     Indication: RHEUMATOID ARTHRITIS
     Dosage: 125 MILLIGRAM, QWK
     Route: 058
     Dates: start: 201501

REACTIONS (6)
  - Paranasal sinus discomfort [Unknown]
  - Post-traumatic neck syndrome [Unknown]
  - Sinusitis [Not Recovered/Not Resolved]
  - Cough [Unknown]
  - Urinary tract infection [Unknown]
  - Influenza like illness [Unknown]
